FAERS Safety Report 17845071 (Version 1)
Quarter: 2020Q2

REPORT INFORMATION
  Report Type: Spontaneous
  Country: US (occurrence: US)
  Receive Date: 20200530
  Receipt Date: 20200530
  Transmission Date: 20200714
  Serious: Yes (Hospitalization)
  Sender: FDA-Public Use
  Company Number: None

PATIENT
  Age: 73 Year
  Sex: Female
  Weight: 33.3 kg

DRUGS (23)
  1. REMDESIVIR. [Suspect]
     Active Substance: REMDESIVIR
     Indication: COVID-19
     Dosage: ?          OTHER FREQUENCY:LOADING/ONCE DAILY;?
     Route: 042
     Dates: start: 20200523, end: 20200524
  2. LEVETIRACETAM. [Concomitant]
     Active Substance: LEVETIRACETAM
     Dates: start: 20200520, end: 20200525
  3. HEPARIN [Concomitant]
     Active Substance: HEPARIN SODIUM
     Dates: start: 20200520, end: 20200522
  4. NAMENDA [Concomitant]
     Active Substance: MEMANTINE HYDROCHLORIDE
     Dates: start: 20200520, end: 20200523
  5. IMDUR [Concomitant]
     Active Substance: ISOSORBIDE MONONITRATE
     Dates: start: 20200521, end: 20200522
  6. ZITHROMAX [Concomitant]
     Active Substance: AZITHROMYCIN DIHYDRATE
     Dates: start: 20200520, end: 20200525
  7. VENLAFAXINE [Concomitant]
     Active Substance: VENLAFAXINE HYDROCHLORIDE
     Dates: start: 20200519, end: 20200523
  8. NEURONTIN [Concomitant]
     Active Substance: GABAPENTIN
     Dates: start: 20200520, end: 20200523
  9. CARDIZEM [Concomitant]
     Active Substance: DILTIAZEM HYDROCHLORIDE
     Dates: start: 20200519, end: 20200522
  10. DEXTROSE. [Concomitant]
     Active Substance: DEXTROSE
     Dates: start: 20200520, end: 20200522
  11. NYSTATIN. [Concomitant]
     Active Substance: NYSTATIN
     Dates: start: 20200521, end: 20200523
  12. CARDIZEM [Concomitant]
     Active Substance: DILTIAZEM HYDROCHLORIDE
     Dates: start: 20200521, end: 20200526
  13. ELIQUIS [Concomitant]
     Active Substance: APIXABAN
     Dates: start: 20200522, end: 20200523
  14. PEPCID [Concomitant]
     Active Substance: FAMOTIDINE
     Dates: start: 20200520, end: 20200523
  15. MORPHINE [Concomitant]
     Active Substance: MORPHINE
     Dates: start: 20200520, end: 20200527
  16. SODIUM CHLORIDE. [Concomitant]
     Active Substance: SODIUM CHLORIDE
     Dates: start: 20200522, end: 20200524
  17. TOPAMAX [Concomitant]
     Active Substance: TOPIRAMATE
     Dates: start: 20200520, end: 20200523
  18. BREO ELLIPTA [Concomitant]
     Active Substance: FLUTICASONE FUROATE\VILANTEROL TRIFENATATE
     Dates: start: 20200521, end: 20200522
  19. TYLENOL [Concomitant]
     Active Substance: ACETAMINOPHEN
     Dates: start: 20200521, end: 20200526
  20. REMDESIVIR. [Suspect]
     Active Substance: REMDESIVIR
     Indication: COVID-19
     Dosage: ?          OTHER FREQUENCY:LOADING/ONCE DAILY;?
     Route: 042
     Dates: start: 20200521, end: 20200522
  21. COMBIVENT [Concomitant]
     Active Substance: ALBUTEROL SULFATE\IPRATROPIUM BROMIDE
     Dates: start: 20200520, end: 20200526
  22. ROCEPHIN [Concomitant]
     Active Substance: CEFTRIAXONE SODIUM
     Dates: start: 20200520, end: 20200525
  23. ASPIRIN. [Concomitant]
     Active Substance: ASPIRIN
     Dates: start: 20200520, end: 20200523

REACTIONS (3)
  - Acute kidney injury [None]
  - Mental status changes [None]
  - Cerebrovascular accident [None]

NARRATIVE: CASE EVENT DATE: 20200525
